FAERS Safety Report 17780933 (Version 1)
Quarter: 2020Q2

REPORT INFORMATION
  Report Type: Spontaneous
  Country: CN (occurrence: CN)
  Receive Date: 20200514
  Receipt Date: 20200514
  Transmission Date: 20200714
  Serious: Yes (Disabling)
  Sender: FDA-Public Use
  Company Number: CN-BAYER-2020-082575

PATIENT
  Age: 23 Year
  Sex: Female
  Weight: 50.5 kg

DRUGS (6)
  1. PAN LI SU [Suspect]
     Active Substance: PANTOPRAZOLE SODIUM
     Indication: STILL^S DISEASE
     Dosage: 40 MG, QD
     Route: 048
     Dates: start: 20200422, end: 20200424
  2. PAN LI SU [Suspect]
     Active Substance: PANTOPRAZOLE SODIUM
     Indication: PROPHYLAXIS
     Dosage: 20 MG, BID
     Route: 048
     Dates: start: 20200425, end: 20200507
  3. CLARITYNE 10 MG [Suspect]
     Active Substance: LORATADINE
     Indication: DERMATITIS ALLERGIC
     Dosage: 10 MG, QD
     Route: 048
     Dates: start: 20200422, end: 20200424
  4. METHYLPREDNISOLONE. [Concomitant]
     Active Substance: METHYLPREDNISOLONE
  5. CALAMINE [CALAMINE;ZINC OXIDE] [Concomitant]
  6. DIAMMONIUM GLYCYRRHIZINATE [Concomitant]
     Active Substance: HERBALS\DIAMMONIUM GLYCYRRHIZINATE

REACTIONS (2)
  - Pain [Recovering/Resolving]
  - Hepatic function abnormal [Recovering/Resolving]

NARRATIVE: CASE EVENT DATE: 20200425
